FAERS Safety Report 8157038-0 (Version None)
Quarter: 2012Q1

REPORT INFORMATION
  Report Type: 
  Country: None (occurrence: None)
  Receive Date: 20120222
  Receipt Date: 20120215
  Transmission Date: 20120608
  Serious: Yes (Other)
  Sender: FDA-Public Use
  Company Number: CA-US-EMD SERONO, INC.-7114187

PATIENT
  Sex: Female

DRUGS (3)
  1. REBIF [Suspect]
     Indication: PRODUCT USED FOR UNKNOWN INDICATION
     Route: 058
     Dates: start: 20111121
  2. CLINDAMYCIN [Suspect]
     Indication: PROPHYLAXIS
     Route: 048
  3. KEFLEX [Suspect]
     Indication: PROPHYLAXIS

REACTIONS (2)
  - PNEUMONIA [None]
  - DRUG HYPERSENSITIVITY [None]
